FAERS Safety Report 5987169-2 (Version None)
Quarter: 2008Q4

REPORT INFORMATION
  Report Type: 
  Country: None (occurrence: None)
  Receive Date: 20081209
  Receipt Date: 20081203
  Transmission Date: 20090506
  Serious: Yes (Hospitalization)
  Sender: FDA-Public Use
  Company Number: FR-JNJFOC-20080703594

PATIENT
  Sex: Female

DRUGS (3)
  1. RISPERDAL [Suspect]
     Indication: MOOD ALTERED
     Route: 048
     Dates: start: 20080521, end: 20080615
  2. TEGRETOL [Suspect]
     Indication: MOOD ALTERED
     Route: 048
     Dates: start: 20080515, end: 20080615
  3. TERCIAN [Suspect]
     Indication: ANXIETY
     Route: 048
     Dates: start: 20080515, end: 20080615

REACTIONS (1)
  - DRUG RASH WITH EOSINOPHILIA AND SYSTEMIC SYMPTOMS [None]
